FAERS Safety Report 9267633 (Version 1)
Quarter: 2013Q2

REPORT INFORMATION
  Report Type: Report from Study
  Country: US (occurrence: US)
  Receive Date: 20130502
  Receipt Date: 20130502
  Transmission Date: 20140414
  Serious: Yes (Hospitalization, Other)
  Sender: FDA-Public Use
  Company Number: US-TEVA-401540USA

PATIENT
  Age: 42 Year
  Sex: Female

DRUGS (2)
  1. COPAXONE [Suspect]
     Indication: MULTIPLE SCLEROSIS
     Dates: start: 20120604, end: 20130301
  2. COPAXONE [Suspect]
     Dates: start: 20130413

REACTIONS (3)
  - Bipolar disorder [Recovered/Resolved]
  - Depression [Recovered/Resolved]
  - Medication error [Recovered/Resolved]
